FAERS Safety Report 5013503-6 (Version None)
Quarter: 2006Q2

REPORT INFORMATION
  Report Type: 
  Country: None (occurrence: None)
  Receive Date: 20060530
  Receipt Date: 20060518
  Transmission Date: 20061013
  Serious: Yes (Hospitalization)
  Sender: FDA-Public Use
  Company Number: GR-SANOFI-SYNTHELABO-A01200603952

PATIENT
  Age: 56 Year
  Sex: Male

DRUGS (1)
  1. PLAVIX [Suspect]
     Indication: STENT PLACEMENT
     Dosage: UNK
     Route: 048

REACTIONS (1)
  - ANAPHYLACTIC SHOCK [None]
